FAERS Safety Report 7134981-2 (Version None)
Quarter: 2010Q4

REPORT INFORMATION
  Report Type: 
  Country: None (occurrence: None)
  Receive Date: 20101203
  Receipt Date: 20101125
  Transmission Date: 20110411
  Serious: Yes (Other)
  Sender: FDA-Public Use
  Company Number: FR-JNJFOC-20101108749

PATIENT
  Age: 85 Year
  Sex: Male

DRUGS (7)
  1. REMINYL [Suspect]
     Indication: DEMENTIA ALZHEIMER'S TYPE
     Route: 048
  2. MEMANTINE HCL [Suspect]
     Indication: DEMENTIA ALZHEIMER'S TYPE
     Route: 048
  3. DEPAMIDE [Suspect]
     Indication: ABNORMAL BEHAVIOUR
     Route: 048
  4. LORAZEPAM [Concomitant]
     Indication: ABNORMAL BEHAVIOUR
     Route: 048
  5. ATENOLOL [Concomitant]
     Indication: INFARCTION
     Route: 048
  6. PRAVASTATIN [Concomitant]
     Indication: INFARCTION
     Route: 048
  7. ASPEGIC 1000 [Concomitant]
     Indication: INFARCTION
     Route: 048

REACTIONS (8)
  - AXILLARY VEIN THROMBOSIS [None]
  - DEEP VEIN THROMBOSIS [None]
  - OEDEMA [None]
  - PERFORMANCE STATUS DECREASED [None]
  - PHLEBITIS [None]
  - PHLEBITIS SUPERFICIAL [None]
  - SEDATION [None]
  - VENOUS THROMBOSIS [None]
